FAERS Safety Report 16217146 (Version 1)
Quarter: 2019Q2

REPORT INFORMATION
  Report Type: Spontaneous
  Country: US (occurrence: US)
  Receive Date: 20190419
  Receipt Date: 20190419
  Transmission Date: 20190711
  Serious: No
  Sender: FDA-Public Use
  Company Number: US-ASTRAZENECA-2018SE61054

PATIENT
  Age: 21212 Day
  Sex: Female
  Weight: 81.2 kg

DRUGS (1)
  1. BYDUREON BCISE [Suspect]
     Active Substance: EXENATIDE
     Indication: TYPE 2 DIABETES MELLITUS
     Route: 058
     Dates: start: 201804

REACTIONS (10)
  - Device issue [Unknown]
  - Circadian rhythm sleep disorder [Unknown]
  - Incorrect dose administered [Unknown]
  - Intentional product misuse [Unknown]
  - Wrong technique in device usage process [Unknown]
  - Circumstance or information capable of leading to medication error [Unknown]
  - Device malfunction [Unknown]
  - Therapy cessation [Unknown]
  - Injection site mass [Recovered/Resolved]
  - Device leakage [Unknown]

NARRATIVE: CASE EVENT DATE: 20180503
